FAERS Safety Report 23956082 (Version 2)
Quarter: 2024Q3

REPORT INFORMATION
  Report Type: Spontaneous
  Country: US (occurrence: US)
  Receive Date: 20240610
  Receipt Date: 20240721
  Transmission Date: 20241016
  Serious: Yes (Life-Threatening, Hospitalization, Other)
  Sender: BRISTOL MYERS SQUIBB
  Company Number: US-BRISTOL-MYERS SQUIBB COMPANY-2024-091330

PATIENT
  Age: 42 Year
  Sex: Female
  Weight: 142.88 kg

DRUGS (5)
  1. ELIQUIS [Suspect]
     Active Substance: APIXABAN
     Indication: Atrial fibrillation
     Dates: start: 202304
  2. METOPROLOL [Concomitant]
     Active Substance: METOPROLOL
     Indication: Cardiac disorder
  3. LASIX [Concomitant]
     Active Substance: FUROSEMIDE
     Indication: Fluid retention
  4. ATORVASTATIN [Concomitant]
     Active Substance: ATORVASTATIN
     Indication: Blood cholesterol
  5. POTASSIUM [Concomitant]
     Active Substance: POTASSIUM
     Indication: Product used for unknown indication

REACTIONS (5)
  - Heavy menstrual bleeding [Recovered/Resolved]
  - Menstrual clots [Unknown]
  - Haemoglobin decreased [Recovered/Resolved]
  - Loss of consciousness [Recovered/Resolved]
  - Serum ferritin decreased [Recovered/Resolved]

NARRATIVE: CASE EVENT DATE: 20230601
